FAERS Safety Report 10235891 (Version 2)
Quarter: 2014Q2

REPORT INFORMATION
  Report Type: Spontaneous
  Country: FI (occurrence: FI)
  Receive Date: 20140613
  Receipt Date: 20140613
  Transmission Date: 20141212
  Serious: Yes (Disabling)
  Sender: FDA-Public Use
  Company Number: FI-B.I. PHARMACEUTICALS,INC./RIDGEFIELD-2014-BI-23603SF

PATIENT
  Age: 66 Year
  Sex: Female

DRUGS (2)
  1. TRAJENTA [Suspect]
     Indication: SUPPLEMENTATION THERAPY
     Dosage: 5 MG
     Route: 065
     Dates: start: 20140502, end: 20140512
  2. CARDACE [Concomitant]
     Dosage: 5 MG
     Route: 065

REACTIONS (2)
  - Local swelling [Recovered/Resolved]
  - Papule [Recovered/Resolved]
